FAERS Safety Report 12573011 (Version 1)
Quarter: 2016Q3

REPORT INFORMATION
  Report Type: Spontaneous
  Country: US (occurrence: None)
  Receive Date: 20160719
  Receipt Date: 20160719
  Transmission Date: 20161109
  Serious: Yes (Hospitalization)
  Sender: FDA-Public Use
  Company Number: None

PATIENT
  Age: 35 Year
  Sex: Male
  Weight: 102.06 kg

DRUGS (1)
  1. OLANZAPINE 15MG TEVA [Suspect]
     Active Substance: OLANZAPINE
     Indication: PSYCHOTIC DISORDER
     Dosage: 15MG QHS PO
     Route: 048
     Dates: start: 20160513, end: 20160620

REACTIONS (1)
  - Priapism [None]
